FAERS Safety Report 4744717-8 (Version None)
Quarter: 2005Q3

REPORT INFORMATION
  Report Type: 
  Country: None (occurrence: None)
  Receive Date: 20050815
  Receipt Date: 20050805
  Transmission Date: 20060218
  Serious: Yes (Other)
  Sender: FDA-Public Use
  Company Number: PHEH2005US08713

PATIENT
  Age: 57 Year
  Sex: Female
  Weight: 83 kg

DRUGS (11)
  1. AVINZA [Concomitant]
  2. FOLIC ACID [Concomitant]
  3. FEMARA [Concomitant]
  4. LIBRIUM [Concomitant]
     Dosage: 25 UNK, UNK
  5. LEXAPRO [Concomitant]
  6. WELLBUTRIN [Concomitant]
  7. SOMA [Concomitant]
  8. FOLGARD RX [Concomitant]
  9. PERCOCET [Concomitant]
     Dosage: 5/325
  10. ENDOCET [Concomitant]
  11. ZELNORM [Suspect]
     Indication: IRRITABLE BOWEL SYNDROME
     Dosage: 6 MG, QD
     Route: 048
     Dates: start: 20050616, end: 20050618

REACTIONS (13)
  - ABDOMINAL DISTENSION [None]
  - ABDOMINAL PAIN [None]
  - COLONIC POLYP [None]
  - DUODENAL ULCER [None]
  - FATIGUE [None]
  - INSOMNIA [None]
  - JOINT RANGE OF MOTION DECREASED [None]
  - MUSCLE SPASMS [None]
  - POSTNASAL DRIP [None]
  - RECTAL HAEMORRHAGE [None]
  - RESPIRATORY DISORDER [None]
  - RHINORRHOEA [None]
  - TYMPANIC MEMBRANE HYPERAEMIA [None]
